FAERS Safety Report 8545384-8 (Version None)
Quarter: 2012Q3

REPORT INFORMATION
  Report Type: 
  Country: None (occurrence: None)
  Receive Date: 20120727
  Receipt Date: 20120719
  Transmission Date: 20120928
  Serious: Yes (Other)
  Sender: FDA-Public Use
  Company Number: CA-ELI_LILLY_AND_COMPANY-CA201207006509

PATIENT
  Age: 87 Year
  Sex: Female

DRUGS (10)
  1. IRBESARTAN HCT [Concomitant]
  2. FISH OIL [Concomitant]
  3. VITAMIN D [Concomitant]
  4. LIPITOR [Concomitant]
  5. VITAMIN E [Concomitant]
  6. OMEGA 3-6-9 [Concomitant]
  7. GLUCOSAMIN                         /00943605/ [Concomitant]
  8. BOICIL [Concomitant]
  9. FORTEO [Suspect]
     Indication: OSTEOPOROSIS
     Dosage: 20 UG, QD
     Route: 058
     Dates: start: 20120302
  10. VITAMIN B-12 [Concomitant]

REACTIONS (2)
  - FEELING ABNORMAL [None]
  - ANXIETY [None]
